FAERS Safety Report 5620962-4 (Version None)
Quarter: 2008Q1

REPORT INFORMATION
  Report Type: 
  Country: None (occurrence: None)
  Receive Date: 20080208
  Receipt Date: 20080128
  Transmission Date: 20080703
  Serious: Yes (Other)
  Sender: FDA-Public Use
  Company Number: FR-PFIZER INC-2008009439

PATIENT
  Sex: Female

DRUGS (1)
  1. CHANTIX [Suspect]
     Indication: EX-SMOKER
     Dates: start: 20070512, end: 20070718

REACTIONS (2)
  - DELIRIUM [None]
  - SLEEP DISORDER [None]
